FAERS Safety Report 5211092-4 (Version None)
Quarter: 2007Q1

REPORT INFORMATION
  Report Type: 
  Country: None (occurrence: None)
  Receive Date: 20070117
  Receipt Date: 20070108
  Transmission Date: 20070707
  Serious: Yes (Hospitalization)
  Sender: FDA-Public Use
  Company Number: FR-GILEAD-2006-0009991

PATIENT
  Sex: Male

DRUGS (5)
  1. TRUVADA [Suspect]
     Indication: HIV INFECTION
     Route: 048
     Dates: start: 20060630, end: 20060802
  2. KALETRA [Concomitant]
     Indication: HIV INFECTION
     Dates: start: 20060728
  3. RIMIFON [Concomitant]
     Indication: TUBERCULOSIS
     Route: 048
     Dates: start: 20060729
  4. PIRILENE [Concomitant]
     Indication: TUBERCULOSIS
     Route: 048
     Dates: start: 20060729
  5. MOXIFLOXACIN HYDROCHLORIDE [Concomitant]
     Route: 048
     Dates: start: 20060729

REACTIONS (3)
  - HYPOMAGNESAEMIA [None]
  - PROTEINURIA [None]
  - RENAL FAILURE [None]
